FAERS Safety Report 12547168 (Version 2)
Quarter: 2016Q3

REPORT INFORMATION
  Report Type: Spontaneous
  Country: CH (occurrence: CH)
  Receive Date: 20160711
  Receipt Date: 20160808
  Transmission Date: 20161109
  Serious: Yes (Death, Hospitalization, Other)
  Sender: FDA-Public Use
  Company Number: CH-TEVA-673416ISR

PATIENT
  Age: 71 Year
  Sex: Female

DRUGS (5)
  1. DEXAMETHASONE. [Suspect]
     Active Substance: DEXAMETHASONE
     Dosage: 24 MILLIGRAM DAILY; UNSPECIFIED STRENGTH, INITIAL DOSE
     Route: 065
     Dates: start: 2014, end: 2014
  2. METHOTREXATE. [Suspect]
     Active Substance: METHOTREXATE
     Indication: DIFFUSE LARGE B-CELL LYMPHOMA
     Dosage: STRENGTH UNSPECIFIED, HIGH DOSE
     Route: 065
     Dates: start: 20140730
  3. DEXAMETHASONE. [Suspect]
     Active Substance: DEXAMETHASONE
     Indication: DIFFUSE LARGE B-CELL LYMPHOMA
     Dosage: 6 MILLIGRAM DAILY; UNSPECIFIED STRENGTH
     Route: 065
     Dates: start: 2014
  4. CEFTRIAXONE. [Concomitant]
     Active Substance: CEFTRIAXONE
     Indication: ANTIBIOTIC THERAPY
     Dosage: UNSPECIFIED STRENGTH
     Route: 065
     Dates: start: 2014
  5. DEXAMETHASONE. [Suspect]
     Active Substance: DEXAMETHASONE
     Dosage: 16 MILLIGRAM DAILY; UNSPECIFIED STRENGTH
     Route: 065
     Dates: start: 2014, end: 2014

REACTIONS (5)
  - Cerebral aspergillosis [Fatal]
  - Pneumothorax [Unknown]
  - Bronchopulmonary aspergillosis [Not Recovered/Not Resolved]
  - Respiratory failure [Fatal]
  - Thrombocytopenia [Unknown]

NARRATIVE: CASE EVENT DATE: 2014
